FAERS Safety Report 8892800 (Version 1)
Quarter: 2012Q4

REPORT INFORMATION
  Report Type: 
  Country: US (occurrence: US)
  Receive Date: 20121107
  Receipt Date: 20121107
  Transmission Date: 20130627
  Serious: No
  Sender: FDA-Public Use
  Company Number: US-AMGEN-USASP2011054427

PATIENT
  Sex: Female
  Weight: 58.96 kg

DRUGS (5)
  1. ENBREL [Suspect]
     Indication: PRODUCT USED FOR UNKNOWN INDICATION
     Dosage: 25 mg, 2 times/wk
  2. PLAQUENIL [Concomitant]
     Dosage: 200 mg, UNK
  3. PREDNISOLONE [Concomitant]
     Dosage: 5 mg, UNK
  4. JOINT PAIN RELIEF [Concomitant]
  5. MINERALS NOS [Concomitant]

REACTIONS (2)
  - Urticaria [Unknown]
  - Rash [Unknown]
